FAERS Safety Report 15756680 (Version 1)
Quarter: 2018Q4

REPORT INFORMATION
  Report Type: Spontaneous
  Country: US (occurrence: US)
  Receive Date: 20181223
  Receipt Date: 20181223
  Transmission Date: 20190205
  Serious: Yes (Other)
  Sender: FDA-Public Use
  Company Number: None

PATIENT
  Age: 68 Year
  Sex: Male
  Weight: 75.6 kg

DRUGS (1)
  1. CIPROFLOXACIN. [Suspect]
     Active Substance: CIPROFLOXACIN
     Indication: INFECTION

REACTIONS (5)
  - Depression [None]
  - Amnesia [None]
  - Personality change [None]
  - Mental disorder [None]
  - Anxiety [None]

NARRATIVE: CASE EVENT DATE: 20181001
